FAERS Safety Report 21151459 (Version 2)
Quarter: 2022Q3

REPORT INFORMATION
  Report Type: Report from Study
  Country: MX (occurrence: MX)
  Receive Date: 20220730
  Receipt Date: 20220808
  Transmission Date: 20221026
  Serious: Yes (Death, Hospitalization)
  Sender: FDA-Public Use
  Company Number: MX-NOVARTISPH-NVSC2022MX172606

PATIENT
  Age: 96 Year
  Sex: Male
  Weight: 87 kg

DRUGS (1)
  1. VOTRIENT [Suspect]
     Active Substance: PAZOPANIB HYDROCHLORIDE
     Indication: Renal cancer
     Dosage: (1 DOSAGE FORM) 200 MG, QD
     Route: 048
     Dates: start: 202205, end: 20220601

REACTIONS (3)
  - Renal cancer [Fatal]
  - Malignant neoplasm progression [Fatal]
  - Eating disorder [Fatal]

NARRATIVE: CASE EVENT DATE: 20220601
